FAERS Safety Report 16732175 (Version 2)
Quarter: 2019Q3

REPORT INFORMATION
  Report Type: Report from Study
  Country: US (occurrence: US)
  Receive Date: 20190822
  Receipt Date: 20190911
  Transmission Date: 20191005
  Serious: Yes (Hospitalization)
  Sender: FDA-Public Use
  Company Number: US-ACTELION-A-US2019-193406

PATIENT
  Age: 53 Year
  Sex: Female

DRUGS (1)
  1. OPSUMIT [Suspect]
     Active Substance: MACITENTAN
     Indication: PULMONARY ARTERIAL HYPERTENSION
     Dosage: 10 MG, QD
     Route: 048
     Dates: start: 20170911

REACTIONS (6)
  - Injection site infection [Unknown]
  - Abdominal discomfort [Unknown]
  - Fluid overload [Recovered/Resolved]
  - Eyelid operation [Unknown]
  - Unevaluable event [Unknown]
  - Headache [Unknown]

NARRATIVE: CASE EVENT DATE: 2019
